FAERS Safety Report 24256522 (Version 3)
Quarter: 2024Q4

REPORT INFORMATION
  Report Type: Spontaneous
  Country: US (occurrence: US)
  Receive Date: 20240828
  Receipt Date: 20241003
  Transmission Date: 20250114
  Serious: Yes (Other)
  Sender: BRISTOL MYERS SQUIBB
  Company Number: US-BRISTOL-MYERS SQUIBB COMPANY-2024-135653

PATIENT
  Age: 81 Year
  Sex: Female

DRUGS (13)
  1. CAMZYOS [Suspect]
     Active Substance: MAVACAMTEN
     Indication: Hypertrophic cardiomyopathy
     Route: 048
     Dates: start: 20230606
  2. CAMZYOS [Suspect]
     Active Substance: MAVACAMTEN
     Route: 048
  3. ROSUVASTATIN [Concomitant]
     Active Substance: ROSUVASTATIN
  4. TYLENOL [Concomitant]
     Active Substance: ACETAMINOPHEN
  5. FOSAMAX [Concomitant]
     Active Substance: ALENDRONATE SODIUM
  6. VITAMIN D3 [Concomitant]
     Active Substance: CHOLECALCIFEROL
  7. COLACE [Concomitant]
     Active Substance: DOCUSATE SODIUM
  8. PEPCID [Concomitant]
     Active Substance: FAMOTIDINE
  9. COZAAR [Concomitant]
     Active Substance: LOSARTAN POTASSIUM
  10. LOPRESSOR [Concomitant]
     Active Substance: METOPROLOL TARTRATE
  11. HYDRALAZINE [Concomitant]
     Active Substance: HYDRALAZINE HYDROCHLORIDE
  12. CRESTOR [Concomitant]
     Active Substance: ROSUVASTATIN CALCIUM
  13. VALSARTAN [Concomitant]
     Active Substance: VALSARTAN

REACTIONS (2)
  - Atrial fibrillation [Unknown]
  - Nasopharyngitis [Unknown]

NARRATIVE: CASE EVENT DATE: 20240825
